FAERS Safety Report 14010487 (Version 2)
Quarter: 2017Q4

REPORT INFORMATION
  Report Type: Spontaneous
  Country: US (occurrence: US)
  Receive Date: 20170926
  Receipt Date: 20171005
  Transmission Date: 20180321
  Serious: Yes (Hospitalization, Disabling)
  Sender: FDA-Public Use
  Company Number: US-CONCORDIA PHARMACEUTICALS INC.-GSH201709-005450

PATIENT
  Age: 45 Year
  Sex: Male

DRUGS (5)
  1. SULFASALAZINE. [Suspect]
     Active Substance: SULFASALAZINE
     Indication: PSORIATIC ARTHROPATHY
     Route: 065
     Dates: start: 1998, end: 1998
  2. MINOCYCLINE HYDROCHLORIDE. [Suspect]
     Active Substance: MINOCYCLINE HYDROCHLORIDE
     Indication: PSORIATIC ARTHROPATHY
     Route: 065
     Dates: start: 1998, end: 1999
  3. HYDROXYCHLOROQUINE [Suspect]
     Active Substance: HYDROXYCHLOROQUINE
     Indication: PSORIATIC ARTHROPATHY
     Route: 065
     Dates: start: 1998, end: 1999
  4. PREDNISONE. [Suspect]
     Active Substance: PREDNISONE
     Dosage: LOW-DOSE PREDNISONE
  5. PREDNISONE. [Suspect]
     Active Substance: PREDNISONE
     Indication: PSORIATIC ARTHROPATHY
     Route: 065

REACTIONS (20)
  - Loss of personal independence in daily activities [Recovering/Resolving]
  - Underweight [Recovering/Resolving]
  - Drug ineffective [Recovering/Resolving]
  - Muscle atrophy [Recovering/Resolving]
  - Bone swelling [Recovering/Resolving]
  - Bone density decreased [Recovering/Resolving]
  - Hypersensitivity [Unknown]
  - Arthralgia [Recovering/Resolving]
  - Psoriasis [Recovering/Resolving]
  - Pyrexia [Recovering/Resolving]
  - Gait inability [Recovering/Resolving]
  - Joint stiffness [Recovering/Resolving]
  - Psoriatic arthropathy [Recovering/Resolving]
  - Bone pain [Recovering/Resolving]
  - Psoriatic arthropathy [Recovering/Resolving]
  - Nail dystrophy [Recovering/Resolving]
  - Off label use [Unknown]
  - Joint swelling [Recovering/Resolving]
  - Nail pitting [Recovering/Resolving]
  - Skin exfoliation [Unknown]

NARRATIVE: CASE EVENT DATE: 1998
